FAERS Safety Report 9935234 (Version 4)
Quarter: 2014Q2

REPORT INFORMATION
  Report Type: Report from Study
  Country: JP (occurrence: JP)
  Receive Date: 20140228
  Receipt Date: 20140522
  Transmission Date: 20141212
  Serious: Yes (Death, Hospitalization, Disabling)
  Sender: FDA-Public Use
  Company Number: JP-B.I. PHARMACEUTICALS,INC./RIDGEFIELD-2013-BI-16237NB

PATIENT
  Age: 86 Year
  Sex: Female
  Weight: 72.9 kg

DRUGS (15)
  1. TRAZENTA [Suspect]
     Indication: TYPE 2 DIABETES MELLITUS
     Dosage: 5 MG
     Route: 048
     Dates: start: 20121108, end: 20131002
  2. REZALTAS [Concomitant]
     Dosage: 1 ANZ
     Route: 048
     Dates: end: 20131002
  3. NATRIX [Concomitant]
     Dosage: 1 MG
     Route: 048
     Dates: end: 20131002
  4. SOLANAX [Concomitant]
     Dosage: 0.4 MG
     Route: 048
     Dates: end: 20131002
  5. WYTENS [Concomitant]
     Dosage: 2 MG
     Route: 048
     Dates: end: 20131002
  6. LIVALO [Concomitant]
     Dosage: 1 MG
     Route: 048
     Dates: end: 20131002
  7. ATELEC [Concomitant]
     Dosage: 10 MG
     Route: 048
     Dates: end: 20131002
  8. ETHYL ICOSAPENTATE [Concomitant]
     Dosage: 2 ANZ
     Route: 048
     Dates: end: 20131002
  9. ACINON [Concomitant]
     Dosage: 300 MG
     Route: 048
     Dates: end: 20131002
  10. VESICARE [Concomitant]
     Dosage: 5 MG
     Route: 048
     Dates: end: 20131002
  11. OLMETEC [Concomitant]
     Dosage: 20 MG
     Route: 048
     Dates: end: 20131002
  12. KENTON [Concomitant]
     Dosage: 600 MG
     Route: 048
     Dates: end: 20131002
  13. BIFUROXIN [Concomitant]
     Dosage: 3 ANZ
     Route: 048
     Dates: end: 20131002
  14. CINAL [Concomitant]
     Dosage: 3 ANZ
     Route: 048
     Dates: end: 20131002
  15. UBIDECARENONE [Concomitant]
     Dosage: 30 MG
     Route: 048
     Dates: end: 20131002

REACTIONS (7)
  - Sepsis [Fatal]
  - Femur fracture [Recovered/Resolved with Sequelae]
  - Fall [Recovered/Resolved with Sequelae]
  - Gastritis [Unknown]
  - Constipation [Not Recovered/Not Resolved]
  - Enterocolitis [Recovered/Resolved]
  - Bronchitis [Recovered/Resolved]
